FAERS Safety Report 4501426-8 (Version None)
Quarter: 2004Q4

REPORT INFORMATION
  Report Type: 
  Country: None (occurrence: None)
  Receive Date: 20041110
  Receipt Date: 20041104
  Transmission Date: 20050328
  Serious: Yes (Death)
  Sender: FDA-Public Use
  Company Number: TPA2004A01276

PATIENT
  Age: 38 Year
  Sex: Male
  Weight: 116.1208 kg

DRUGS (13)
  1. ACTOS [Suspect]
     Indication: DIABETES MELLITUS NON-INSULIN-DEPENDENT
     Dosage: SEE IMAGE
     Route: 048
     Dates: start: 20030623, end: 20030921
  2. ACTOS [Suspect]
     Indication: DIABETES MELLITUS NON-INSULIN-DEPENDENT
     Dosage: SEE IMAGE
     Route: 048
     Dates: start: 20030921
  3. CYMBALTA [Suspect]
     Indication: DEPRESSION
     Dosage: 60 MG
     Dates: start: 20040901
  4. SEROQUEL [Concomitant]
  5. VICODIN HP (VICODIN) [Concomitant]
  6. ZOLOFT (SERTRALINE HYDROCHLORIDE) (100 MILLIGRAM) [Concomitant]
  7. REGLAN (METOCLOPRAMIDE HYDROCHLORIDE) (10 MILLIGRAM) [Concomitant]
  8. GLYBURIDE (GLIBENCLAMIDE) (10 MILLIGRAM) [Concomitant]
  9. METFORMIN (METFORMIN0 (1000 MILLIGRAM) [Concomitant]
  10. DEPAKOTE (VALPROATE SEMISODIUM) (25 MILLIGRAM) [Concomitant]
  11. PREVACID [Concomitant]
  12. ZOCOR (SIMVASTATIN) (40 MILLIGRAM) [Concomitant]
  13. BENAZEPRIL (BENAZEPRIL) (40 MILLIGRAM) [Concomitant]

REACTIONS (1)
  - ATRIOVENTRICULAR BLOCK COMPLETE [None]
